FAERS Safety Report 6768045-4 (Version None)
Quarter: 2010Q2

REPORT INFORMATION
  Report Type: 
  Country: None (occurrence: None)
  Receive Date: 20100614
  Receipt Date: 20100609
  Transmission Date: 20101027
  Serious: Yes (Hospitalization)
  Sender: FDA-Public Use
  Company Number: B0659258A

PATIENT
  Sex: Female
  Weight: 82 kg

DRUGS (5)
  1. MARAVIROC [Suspect]
     Indication: HIV INFECTION
     Dates: start: 20091117
  2. ETRAVIRINE [Concomitant]
     Dosage: 400MG TWICE PER DAY
     Dates: start: 20100105
  3. TIPRANAVIR [Concomitant]
     Dosage: 500MG TWICE PER DAY
     Dates: start: 20090721
  4. RITONAVIR [Concomitant]
     Dosage: 200MG TWICE PER DAY
     Dates: start: 20090721
  5. TRUVADA [Concomitant]
     Dosage: 1TAB PER DAY
     Dates: start: 20090323

REACTIONS (1)
  - VULVOVAGINAL MYCOTIC INFECTION [None]
